FAERS Safety Report 6775090-1 (Version None)
Quarter: 2010Q2

REPORT INFORMATION
  Report Type: 
  Country: None (occurrence: None)
  Receive Date: 20100617
  Receipt Date: 20100614
  Transmission Date: 20101027
  Serious: Yes (Hospitalization)
  Sender: FDA-Public Use
  Company Number: B0660445A

PATIENT
  Sex: Male

DRUGS (7)
  1. AUGMENTIN '125' [Suspect]
     Indication: DRUG USE FOR UNKNOWN INDICATION
     Route: 048
     Dates: start: 20100526, end: 20100528
  2. MYAMBUTOL [Concomitant]
     Dosage: 4TAB PER DAY
     Route: 048
     Dates: start: 20100526
  3. RIFATER [Concomitant]
     Dosage: 6TAB PER DAY
     Route: 048
     Dates: start: 20100526
  4. NEXIUM [Concomitant]
     Route: 065
  5. ALDACTONE [Concomitant]
     Route: 065
  6. GLUCOPHAGE [Concomitant]
     Route: 065
  7. PYOSTACINE [Concomitant]
     Route: 065
     Dates: start: 20100528, end: 20100531

REACTIONS (2)
  - PRURITUS [None]
  - RASH MACULO-PAPULAR [None]
